FAERS Safety Report 16320941 (Version 1)
Quarter: 2019Q2

REPORT INFORMATION
  Report Type: Spontaneous
  Country: US (occurrence: US)
  Receive Date: 20190516
  Receipt Date: 20190516
  Transmission Date: 20190711
  Serious: No
  Sender: FDA-Public Use
  Company Number: US-009507513-1905USA006030

PATIENT
  Sex: Female

DRUGS (1)
  1. NEXPLANON [Suspect]
     Active Substance: ETONOGESTREL
     Dosage: 1 ROD / EVERY 3 EYARS
     Route: 059

REACTIONS (4)
  - Infection [Unknown]
  - Rash [Unknown]
  - Implant site scar [Unknown]
  - Implant site fibrosis [Unknown]
